FAERS Safety Report 18688054 (Version 1)
Quarter: 2020Q4

REPORT INFORMATION
  Report Type: Spontaneous
  Country: US (occurrence: US)
  Receive Date: 20201230
  Receipt Date: 20201230
  Transmission Date: 20210114
  Serious: Yes (Other)
  Sender: FDA-Public Use
  Company Number: None

PATIENT
  Age: 46 Year
  Sex: Male
  Weight: 123.75 kg

DRUGS (1)
  1. KRYSTEXXA [Suspect]
     Active Substance: PEGLOTICASE
     Indication: GOUT
     Dosage: ?          OTHER FREQUENCY:Q2 WEEK;?
     Route: 042
     Dates: start: 20201219, end: 20201219

REACTIONS (5)
  - Pruritus [None]
  - Erythema [None]
  - Throat tightness [None]
  - Flushing [None]
  - Dysphagia [None]

NARRATIVE: CASE EVENT DATE: 20201219
